FAERS Safety Report 11497153 (Version 3)
Quarter: 2016Q2

REPORT INFORMATION
  Report Type: Spontaneous
  Country: US (occurrence: US)
  Receive Date: 20150911
  Receipt Date: 20160609
  Transmission Date: 20160815
  Serious: Yes (Hospitalization)
  Sender: FDA-Public Use
  Company Number: US-JNJFOC-20150904226

PATIENT
  Sex: Female

DRUGS (3)
  1. LEVAQUIN [Suspect]
     Active Substance: LEVOFLOXACIN
     Indication: GASTROINTESTINAL INFECTION
     Route: 048
     Dates: start: 201505, end: 2015
  2. LEVAQUIN [Suspect]
     Active Substance: LEVOFLOXACIN
     Indication: GASTROINTESTINAL INFECTION
     Route: 048
     Dates: start: 2015, end: 2015
  3. LEVAQUIN [Suspect]
     Active Substance: LEVOFLOXACIN
     Indication: GASTROINTESTINAL INFECTION
     Route: 042
     Dates: start: 2015, end: 2015

REACTIONS (16)
  - Influenza like illness [Not Recovered/Not Resolved]
  - Fungal infection [Not Recovered/Not Resolved]
  - Anxiety [Not Recovered/Not Resolved]
  - Chromaturia [Unknown]
  - Tinnitus [Not Recovered/Not Resolved]
  - Impaired work ability [Not Recovered/Not Resolved]
  - Upper respiratory tract infection [Not Recovered/Not Resolved]
  - Small fibre neuropathy [Not Recovered/Not Resolved]
  - Arthralgia [Not Recovered/Not Resolved]
  - Fatigue [Not Recovered/Not Resolved]
  - Influenza [Not Recovered/Not Resolved]
  - Muscular weakness [Not Recovered/Not Resolved]
  - Malaise [Unknown]
  - Vitreous detachment [Not Recovered/Not Resolved]
  - Dementia Alzheimer^s type [Not Recovered/Not Resolved]
  - Myalgia [Not Recovered/Not Resolved]

NARRATIVE: CASE EVENT DATE: 2015
